FAERS Safety Report 8240349-8 (Version None)
Quarter: 2012Q1

REPORT INFORMATION
  Report Type: 
  Country: None (occurrence: None)
  Receive Date: 20120328
  Receipt Date: 20111102
  Transmission Date: 20120608
  Serious: Yes (Other)
  Sender: FDA-Public Use
  Company Number: PHFR2011GB05585

PATIENT
  Sex: Male

DRUGS (6)
  1. AMISULPRIDE [Concomitant]
     Dosage: 400 MG,DAILY
     Route: 048
  2. CITALOPRAM HYDROBROMIDE [Concomitant]
     Dosage: 40 MG, DAILY
     Route: 048
  3. LEXUM [Concomitant]
     Dosage: 2 UKN, PRN
     Route: 048
  4. VALPROATE SODIUM [Concomitant]
     Dosage: 1000 MG, DAILY
     Route: 048
  5. CLOZARIL [Suspect]
     Dosage: 400 MG,DAILY
     Route: 048
     Dates: start: 20100524, end: 20111004
  6. CLOZARIL [Suspect]
     Indication: SCHIZOPHRENIA
     Route: 048
     Dates: start: 20090928

REACTIONS (2)
  - NEUTROPHIL COUNT DECREASED [None]
  - DIFFERENTIAL WHITE BLOOD CELL COUNT ABNORMAL [None]
